FAERS Safety Report 4990168-0 (Version None)
Quarter: 2006Q2

REPORT INFORMATION
  Report Type: 
  Country: None (occurrence: None)
  Receive Date: 20060503
  Receipt Date: 20051004
  Transmission Date: 20061013
  Serious: Yes (Hospitalization, Other)
  Sender: FDA-Public Use
  Company Number: US-MERCK-0510USA03543

PATIENT
  Age: 43 Year
  Sex: Female
  Weight: 114 kg

DRUGS (4)
  1. VIOXX [Suspect]
     Indication: ARTHRALGIA
     Route: 048
     Dates: start: 19990101
  2. VIOXX [Suspect]
     Indication: ARTHRITIS
     Route: 048
     Dates: start: 19990101
  3. VIOXX [Suspect]
     Route: 048
     Dates: start: 19990101
  4. VIOXX [Suspect]
     Route: 048
     Dates: start: 19990101

REACTIONS (15)
  - ACUTE MYOCARDIAL INFARCTION [None]
  - ANGINA PECTORIS [None]
  - BLOOD CHOLESTEROL INCREASED [None]
  - CARDIOVASCULAR DISORDER [None]
  - CHOLECYSTITIS CHRONIC [None]
  - CORONARY ARTERY DISEASE [None]
  - DIABETIC GASTROPARESIS [None]
  - HAEMATURIA [None]
  - LUNG DISORDER [None]
  - MENORRHAGIA [None]
  - PULMONARY EMBOLISM [None]
  - RETINAL DETACHMENT [None]
  - THROMBOSIS [None]
  - UTERINE LEIOMYOMA [None]
  - VENTRICULAR TACHYCARDIA [None]
